FAERS Safety Report 7231791-2 (Version None)
Quarter: 2011Q1

REPORT INFORMATION
  Report Type: 
  Country: None (occurrence: None)
  Receive Date: 20110118
  Receipt Date: 20110114
  Transmission Date: 20110831
  Serious: Yes (Death)
  Sender: FDA-Public Use
  Company Number: US-B.I. PHARMACEUTICALS,INC./RIDGEFIELD-2010-BP-14184BP

PATIENT
  Sex: Female

DRUGS (6)
  1. METOPROLOL [Concomitant]
     Indication: HYPERTENSION
  2. NITROFURANTOIN [Concomitant]
     Indication: CYSTITIS
  3. DILTIAZEM [Concomitant]
     Indication: HYPERTENSION
  4. LIPITOR [Concomitant]
     Indication: BLOOD CHOLESTEROL INCREASED
  5. PRADAXA [Suspect]
     Indication: CEREBROVASCULAR ACCIDENT
     Dosage: 300 MG
     Route: 048
     Dates: start: 20101101
  6. RAMIPRIL [Concomitant]
     Indication: CARDIAC DISORDER

REACTIONS (2)
  - DEATH [None]
  - GINGIVAL BLEEDING [None]
